FAERS Safety Report 7770674-6 (Version None)
Quarter: 2011Q3

REPORT INFORMATION
  Report Type: 
  Country: None (occurrence: None)
  Receive Date: 20110922
  Receipt Date: 20110916
  Transmission Date: 20111222
  Serious: Yes (Hospitalization)
  Sender: FDA-Public Use
  Company Number: US-ALEXION-A201101416

PATIENT
  Sex: Female

DRUGS (1)
  1. SOLIRIS [Suspect]
     Indication: PAROXYSMAL NOCTURNAL HAEMOGLOBINURIA
     Dosage: UNK
     Route: 042

REACTIONS (6)
  - DIARRHOEA [None]
  - PARAINFLUENZAE VIRUS INFECTION [None]
  - HAEMOGLOBIN DECREASED [None]
  - DIZZINESS [None]
  - COLD SWEAT [None]
  - PYREXIA [None]
